FAERS Safety Report 25045768 (Version 1)
Quarter: 2025Q1

REPORT INFORMATION
  Report Type: Spontaneous
  Country: US (occurrence: None)
  Receive Date: 20250305
  Receipt Date: 20250305
  Transmission Date: 20250409
  Serious: Yes (Death)
  Sender: FDA-CTU
  Company Number: None

PATIENT
  Age: 75 Year
  Sex: Female

DRUGS (33)
  1. AMIODARONE HYDROCHLORIDE [Suspect]
     Active Substance: AMIODARONE HYDROCHLORIDE
     Indication: Heart valve incompetence
     Dates: start: 20230209, end: 202403
  2. METOCLOPRAMIDE [Concomitant]
     Active Substance: METOCLOPRAMIDE
  3. FERROUS SULFATE [Concomitant]
     Active Substance: FERROUS SULFATE
  4. Cefuoxime Axetil [Concomitant]
  5. AMLODIPINE BESYLATE [Concomitant]
     Active Substance: AMLODIPINE BESYLATE
  6. LORAZEPAM [Concomitant]
     Active Substance: LORAZEPAM
  7. Budesonide DR [Concomitant]
  8. VALSARTAN [Concomitant]
     Active Substance: VALSARTAN
  9. SERTRALINE HYDROCHLORIDE [Concomitant]
     Active Substance: SERTRALINE HYDROCHLORIDE
  10. SIMVASTATIN [Concomitant]
     Active Substance: SIMVASTATIN
  11. Esomeprazole Mag Dr [Concomitant]
  12. METOPROLOL TARTRATE [Concomitant]
     Active Substance: METOPROLOL TARTRATE
  13. CETIRIZINE HCL [Concomitant]
     Active Substance: CETIRIZINE HYDROCHLORIDE
  14. METRONIDAZOLE [Concomitant]
     Active Substance: METRONIDAZOLE
  15. LORAZEPAM [Concomitant]
     Active Substance: LORAZEPAM
  16. ASPIRIN [Concomitant]
     Active Substance: ASPIRIN
  17. DICYCLOMINE [Concomitant]
     Active Substance: DICYCLOMINE HYDROCHLORIDE
  18. AMOXICILLIN [Concomitant]
     Active Substance: AMOXICILLIN
  19. ONDANSETRON HYDROCHLORIDE [Concomitant]
     Active Substance: ONDANSETRON HYDROCHLORIDE
  20. Culturelle Probiotc Digestive [Concomitant]
  21. MECLIZINE [Concomitant]
     Active Substance: MECLIZINE HYDROCHLORIDE
  22. TRIAMCINOLONE [Concomitant]
     Active Substance: TRIAMCINOLONE
  23. NITROGLYCERIN [Concomitant]
     Active Substance: NITROGLYCERIN
  24. FLUCONAZOLE [Concomitant]
     Active Substance: FLUCONAZOLE
  25. PREDNISONE [Concomitant]
     Active Substance: PREDNISONE
  26. ALBUTEROL SULFATE [Concomitant]
     Active Substance: ALBUTEROL SULFATE
  27. AZITHROMYCIN [Concomitant]
     Active Substance: AZITHROMYCIN
  28. COLESTIPOL HYDROCHLORIDE [Concomitant]
     Active Substance: COLESTIPOL HYDROCHLORIDE
  29. FLUCELVAX QUADRIVALENT NOS [Concomitant]
     Active Substance: INFLUENZA A VIRUS A/BRISBANE/10/2010 (H1N1) ANTIGEN (MDCK CELL DERIVED, PROPIOLACTONE INACTIVATED)\I
  30. RANOLAZINE [Concomitant]
     Active Substance: RANOLAZINE
  31. Fluzone Quad [Concomitant]
  32. vit. b [Concomitant]
  33. VITAMIN C [Concomitant]
     Active Substance: ASCORBIC ACID
     Dates: start: 20230209, end: 202403

REACTIONS (2)
  - Interstitial lung disease [None]
  - Pneumonitis [None]

NARRATIVE: CASE EVENT DATE: 20230209
